FAERS Safety Report 6531026-X (Version None)
Quarter: 2010Q1

REPORT INFORMATION
  Report Type: 
  Country: None (occurrence: None)
  Receive Date: 20100108
  Receipt Date: 20090923
  Transmission Date: 20100710
  Serious: No
  Sender: FDA-Public Use
  Company Number: A0808701A

PATIENT
  Age: 59 Year
  Sex: Female

DRUGS (8)
  1. LOVAZA [Suspect]
     Dosage: 4CAP PER DAY
     Route: 048
     Dates: start: 20090701, end: 20090919
  2. LIPITOR [Concomitant]
  3. POTASSIUM [Concomitant]
  4. NEXIUM [Concomitant]
  5. MAG-OX [Concomitant]
  6. BENAZAPRIL [Concomitant]
  7. LOXAPINE [Concomitant]
  8. ASPIRIN [Concomitant]

REACTIONS (2)
  - FLUSHING [None]
  - RASH PRURITIC [None]
